FAERS Safety Report 8985970 (Version 1)
Quarter: 2012Q4

REPORT INFORMATION
  Report Type: 
  Country: US (occurrence: US)
  Receive Date: 20121226
  Receipt Date: 20121226
  Transmission Date: 20130627
  Serious: No
  Sender: FDA-Public Use
  Company Number: US-ABBOTT-12P-163-1002332-00

PATIENT
  Age: 67 Year
  Sex: Male
  Weight: 112.14 kg

DRUGS (7)
  1. LUPRON DEPOT [Suspect]
     Indication: PROSTATE CANCER
     Dosage: Last injection was in Jun 2012
     Dates: start: 20111207
  2. LUPRON DEPOT [Suspect]
     Dates: start: 20111207
  3. EXGEVA (NON-ABBOTT) [Concomitant]
     Indication: PRODUCT USED FOR UNKNOWN INDICATION
  4. ATENOLOL [Concomitant]
     Indication: PRODUCT USED FOR UNKNOWN INDICATION
  5. CASODEX [Concomitant]
     Indication: PRODUCT USED FOR UNKNOWN INDICATION
  6. RAPAFLOW (NON-ABBOTT) [Concomitant]
     Indication: PRODUCT USED FOR UNKNOWN INDICATION
  7. PROSTEON MULTIVITAMIN (NON-ABBOTT) [Concomitant]
     Indication: PRODUCT USED FOR UNKNOWN INDICATION

REACTIONS (1)
  - Blood testosterone abnormal [Not Recovered/Not Resolved]
